FAERS Safety Report 14466061 (Version 1)
Quarter: 2018Q1

REPORT INFORMATION
  Report Type: Spontaneous
  Country: PT (occurrence: PT)
  Receive Date: 20180131
  Receipt Date: 20180131
  Transmission Date: 20180509
  Serious: Yes (Life-Threatening, Other)
  Sender: FDA-Public Use
  Company Number: PT-009507513-1801PRT009791

PATIENT
  Sex: Female

DRUGS (1)
  1. BRIDION [Suspect]
     Active Substance: SUGAMMADEX
     Dosage: 2 MG/KG, UNK

REACTIONS (3)
  - Skin discolouration [Recovered/Resolved]
  - Anaphylactic reaction [Recovered/Resolved]
  - Respiratory depression [Recovered/Resolved]
